FAERS Safety Report 16076962 (Version 1)
Quarter: 2019Q1

REPORT INFORMATION
  Report Type: Spontaneous
  Country: US (occurrence: US)
  Receive Date: 20190315
  Receipt Date: 20190315
  Transmission Date: 20190418
  Serious: No
  Sender: FDA-Public Use
  Company Number: US-ASTRAZENECA-2019SE27843

PATIENT
  Age: 2813 Week
  Sex: Female
  Weight: 59 kg

DRUGS (7)
  1. LEXAPRO [Concomitant]
     Active Substance: ESCITALOPRAM OXALATE
  2. TYLENOL 8HR [Concomitant]
     Active Substance: ACETAMINOPHEN
     Indication: PAIN
     Dosage: AS REQUIRED
     Route: 048
  3. FEMARA [Concomitant]
     Active Substance: LETROZOLE
  4. IBRANCE [Suspect]
     Active Substance: PALBOCICLIB
     Indication: BREAST CANCER METASTATIC
     Dosage: 125 MG DAYS 1 THRU 21 OFF FOR 7 DAYS
     Route: 048
     Dates: start: 20190109
  5. TAXOL [Concomitant]
     Active Substance: PACLITAXEL
  6. FASLODEX [Suspect]
     Active Substance: FULVESTRANT
     Indication: BREAST CANCER METASTATIC
     Route: 030
     Dates: start: 20190109
  7. CYMBALTA [Concomitant]
     Active Substance: DULOXETINE HYDROCHLORIDE
     Indication: NEUROPATHY PERIPHERAL
     Route: 048

REACTIONS (14)
  - Abdominal pain upper [Recovered/Resolved with Sequelae]
  - Impaired quality of life [Recovered/Resolved with Sequelae]
  - Haemoglobin decreased [Not Recovered/Not Resolved]
  - Abdominal discomfort [Recovered/Resolved]
  - Skin discolouration [Recovered/Resolved]
  - Platelet count decreased [Not Recovered/Not Resolved]
  - Hyperthyroidism [Not Recovered/Not Resolved]
  - Arthralgia [Recovered/Resolved]
  - White blood cell count decreased [Not Recovered/Not Resolved]
  - Bowel movement irregularity [Recovered/Resolved with Sequelae]
  - Haematocrit decreased [Not Recovered/Not Resolved]
  - Injection site pain [Unknown]
  - Hypotension [Recovered/Resolved]
  - Nausea [Recovered/Resolved with Sequelae]

NARRATIVE: CASE EVENT DATE: 201901
